FAERS Safety Report 5163493-0 (Version None)
Quarter: 2006Q4

REPORT INFORMATION
  Report Type: 
  Country: None (occurrence: None)
  Receive Date: 20061128
  Receipt Date: 20061128
  Transmission Date: 20070319
  Serious: Yes (Hospitalization)
  Sender: FDA-Public Use
  Company Number: None

PATIENT
  Age: 72 Year
  Sex: Male
  Weight: 64.4108 kg

DRUGS (6)
  1. PACLITAXEL [Suspect]
     Dosage: WEEKLY X 6 TOTAL DOSE = 522 MG
     Dates: start: 20061009, end: 20061113
  2. CARBOPLATIN [Suspect]
     Dosage: TOTAL DOSE 1236 MG
     Dates: start: 20061009, end: 20061113
  3. CETUXIMAB [Suspect]
     Dosage: TOTAL 2866 MG
     Dates: start: 20061009, end: 20061113
  4. RADIATION [Suspect]
     Dosage: TOTAL OF 50.4 GY/28 FRACTIONS
     Dates: start: 20061009, end: 20061115
  5. IV ANTIBIOTICS [Concomitant]
  6. NEUPOGEN [Concomitant]

REACTIONS (3)
  - CHILLS [None]
  - NEUTROPENIA [None]
  - PYREXIA [None]
